FAERS Safety Report 23347835 (Version 1)
Quarter: 2023Q4

REPORT INFORMATION
  Report Type: Spontaneous
  Country: US (occurrence: None)
  Receive Date: 20231228
  Receipt Date: 20231228
  Transmission Date: 20240109
  Serious: Yes (Hospitalization)
  Sender: FDA-Public Use
  Company Number: None

PATIENT
  Age: 58 Year
  Sex: Female

DRUGS (6)
  1. GLATIRAMER [Suspect]
     Active Substance: GLATIRAMER
     Indication: Multiple sclerosis
     Dosage: FREQUENCY : AS DIRECTED;?INJECT 1 SYRINGE SUBCUTANEOUSLY THREE TIMES PER WEEK SAME 3 DAYS IN THE ABD
     Route: 058
     Dates: start: 20200220
  2. GLATIRAMER [Suspect]
     Active Substance: GLATIRAMER
     Dosage: OTHER QUANTITY : 1 SYRINGE;?FREQUENCY : AS DIRECTED;?
     Route: 058
  3. CHLORTHALID [Concomitant]
  4. FAMOTIDINE [Concomitant]
  5. MONTELUKAST [Concomitant]
     Active Substance: MONTELUKAST SODIUM
  6. VERAPAMIL [Concomitant]
     Active Substance: VERAPAMIL HYDROCHLORIDE

REACTIONS (3)
  - Arthralgia [None]
  - Hypoaesthesia [None]
  - Rotator cuff syndrome [None]

NARRATIVE: CASE EVENT DATE: 20231001
